FAERS Safety Report 24120962 (Version 1)
Quarter: 2024Q3

REPORT INFORMATION
  Report Type: Spontaneous
  Country: US (occurrence: None)
  Receive Date: 20240718
  Receipt Date: 20240718
  Transmission Date: 20241017
  Serious: Yes (Other)
  Sender: Public
  Company Number: None

PATIENT
  Age: 61 Year
  Sex: Male
  Weight: 86 kg

DRUGS (2)
  1. ABIRATERONE ACETATE [Suspect]
     Active Substance: ABIRATERONE ACETATE
     Indication: Prostate cancer
     Dosage: FREQUENCY : DAILY;?
     Route: 048
     Dates: start: 20230327, end: 20240403
  2. prednisone 5mg daily [Concomitant]
     Dates: start: 20230328, end: 20240403

REACTIONS (5)
  - Oedema peripheral [None]
  - Pain in extremity [None]
  - Ejection fraction decreased [None]
  - Ventricular hypokinesia [None]
  - Joint swelling [None]

NARRATIVE: CASE EVENT DATE: 20240326
